FAERS Safety Report 25875640 (Version 1)
Quarter: 2025Q4

REPORT INFORMATION
  Report Type: Spontaneous
  Country: US (occurrence: US)
  Receive Date: 20251003
  Receipt Date: 20251003
  Transmission Date: 20260118
  Serious: No
  Sender: BIOGEN
  Company Number: US-BIOGEN-2025BI01325382

PATIENT
  Sex: Female

DRUGS (28)
  1. AVONEX [Suspect]
     Active Substance: INTERFERON BETA-1A
     Indication: Multiple sclerosis
     Route: 050
  2. LINZESS [Concomitant]
     Active Substance: LINACLOTIDE
     Route: 050
  3. BIOTIN [Concomitant]
     Active Substance: BIOTIN
     Route: 050
  4. FLAXSEED [Concomitant]
     Active Substance: FLAX SEED
     Route: 050
  5. VITAMIN D [Concomitant]
     Active Substance: VITAMIN D NOS
     Route: 050
  6. LIDOCAINE [Concomitant]
     Active Substance: LIDOCAINE
     Route: 050
  7. BACLOFEN [Concomitant]
     Active Substance: BACLOFEN
     Route: 050
  8. VITAMIN B12 [Concomitant]
     Active Substance: CYANOCOBALAMIN
     Dosage: LIVER ORAL
     Route: 050
  9. SUCRALFATE [Concomitant]
     Active Substance: SUCRALFATE
     Route: 050
  10. DICYCLOMINE [Concomitant]
     Active Substance: DICYCLOMINE HYDROCHLORIDE
     Route: 050
  11. ZOLPIDEM [Concomitant]
     Active Substance: ZOLPIDEM TARTRATE
     Route: 050
  12. CYMBALTA [Concomitant]
     Active Substance: DULOXETINE HYDROCHLORIDE
     Route: 050
  13. DALFAMPRIDINE [Concomitant]
     Active Substance: DALFAMPRIDINE
     Route: 050
  14. REXULTI [Concomitant]
     Active Substance: BREXPIPRAZOLE
     Route: 050
  15. MIDODRINE [Concomitant]
     Active Substance: MIDODRINE
     Route: 050
  16. RECLAST [Concomitant]
     Active Substance: ZOLEDRONIC ACID
     Route: 050
  17. VALACYCLOVIR [Concomitant]
     Active Substance: VALACYCLOVIR HYDROCHLORIDE
     Route: 050
  18. METHADONE [Concomitant]
     Active Substance: METHADONE HYDROCHLORIDE
     Route: 050
  19. ELIQUIS [Concomitant]
     Active Substance: APIXABAN
     Route: 050
  20. FOLIC ACID [Concomitant]
     Active Substance: FOLIC ACID
     Route: 050
  21. TRAZODONE [Concomitant]
     Active Substance: TRAZODONE HYDROCHLORIDE
     Route: 050
  22. DIAZEPAM [Concomitant]
     Active Substance: DIAZEPAM
     Route: 050
  23. GABAPENTIN [Concomitant]
     Active Substance: GABAPENTIN
     Route: 050
  24. CALCIUM\VITAMIN D [Concomitant]
     Active Substance: CALCIUM\VITAMIN D
     Route: 050
  25. ALBUTEROL SULFATE [Concomitant]
     Active Substance: ALBUTEROL SULFATE
     Route: 050
  26. CLONAZEPAM [Concomitant]
     Active Substance: CLONAZEPAM
     Route: 050
  27. FAMOTIDINE [Concomitant]
     Active Substance: FAMOTIDINE
     Route: 050
  28. OMEGA 3 [Concomitant]
     Active Substance: CAPSAICIN
     Route: 050

REACTIONS (1)
  - Treatment failure [Unknown]
